FAERS Safety Report 4414610-9 (Version None)
Quarter: 2004Q3

REPORT INFORMATION
  Report Type: 
  Country: None (occurrence: None)
  Receive Date: 20040729
  Receipt Date: 20040721
  Transmission Date: 20050211
  Serious: Yes (Death)
  Sender: FDA-Public Use
  Company Number: 2004SE04162

PATIENT
  Age: 33 Year
  Sex: Female

DRUGS (3)
  1. SEROQUEL [Suspect]
     Indication: SCHIZOPHRENIA
     Dosage: 100-800 MG DAILY
     Dates: start: 20040615, end: 20040627
  2. RIVOTRIL [Concomitant]
  3. HORMONAL CONTRACEPTION [Concomitant]

REACTIONS (4)
  - HYPOTENSION [None]
  - LOSS OF CONSCIOUSNESS [None]
  - PULMONARY EMBOLISM [None]
  - TACHYCARDIA [None]
